FAERS Safety Report 16388796 (Version 1)
Quarter: 2019Q3

REPORT INFORMATION
  Report Type: Spontaneous
  Country: US (occurrence: US)
  Receive Date: 20190602
  Receipt Date: 20190602
  Transmission Date: 20191004
  Serious: Yes (Other)
  Sender: FDA-Public Use
  Company Number: None

PATIENT
  Age: 61 Year
  Sex: Female
  Weight: 59.4 kg

DRUGS (4)
  1. CODEINE [Concomitant]
     Active Substance: CODEINE
  2. DALMANE [Concomitant]
     Active Substance: FLURAZEPAM HYDROCHLORIDE
  3. QUDEXY XR [Suspect]
     Active Substance: TOPIRAMATE
     Indication: DIZZINESS
     Dosage: ?          QUANTITY:2 TABLET(S);?
     Route: 048
     Dates: start: 20190501, end: 20190522
  4. CELEBREX [Concomitant]
     Active Substance: CELECOXIB

REACTIONS (13)
  - Nausea [None]
  - Somnolence [None]
  - Memory impairment [None]
  - Disturbance in attention [None]
  - Thirst [None]
  - Depressed level of consciousness [None]
  - Dry mouth [None]
  - Aphasia [None]
  - Decreased appetite [None]
  - Insomnia [None]
  - Apathy [None]
  - Weight decreased [None]
  - Burning sensation [None]

NARRATIVE: CASE EVENT DATE: 20190501
